FAERS Safety Report 4825207-0 (Version None)
Quarter: 2005Q4

REPORT INFORMATION
  Report Type: 
  Country: None (occurrence: None)
  Receive Date: 20051109
  Receipt Date: 20051101
  Transmission Date: 20060501
  Serious: Yes (Life-Threatening, Hospitalization, Other)
  Sender: FDA-Public Use
  Company Number: PHFR2005GB03308

PATIENT
  Age: 14 Year
  Sex: Female
  Weight: 40 kg

DRUGS (3)
  1. DICLOFENAC SODIUM [Suspect]
     Indication: INCORRECT DOSE ADMINISTERED
     Dosage: 1050 MG, ONCE/SINGLE, ORAL
     Route: 048
  2. METFORMIN HCL [Suspect]
     Indication: INCORRECT DOSE ADMINISTERED
     Dosage: 63 G, ONCE/SINGLE, ORAL
     Route: 048
  3. ATENOLOL [Suspect]
     Indication: INCORRECT DOSE ADMINISTERED
     Dosage: 1400 MG, ONCE/SINGLE, ORAL
     Route: 048

REACTIONS (11)
  - BLOOD ALBUMIN INCREASED [None]
  - BRADYCARDIA [None]
  - CONVULSION [None]
  - DEPRESSED LEVEL OF CONSCIOUSNESS [None]
  - HAEMODIALYSIS [None]
  - HYPOGLYCAEMIA [None]
  - HYPOTENSION [None]
  - LACTIC ACIDOSIS [None]
  - METABOLIC ACIDOSIS [None]
  - MULTIPLE DRUG OVERDOSE INTENTIONAL [None]
  - SUICIDE ATTEMPT [None]
